FAERS Safety Report 16262365 (Version 1)
Quarter: 2019Q2

REPORT INFORMATION
  Report Type: Spontaneous
  Country: KR (occurrence: KR)
  Receive Date: 20190501
  Receipt Date: 20190501
  Transmission Date: 20190711
  Serious: Yes (Hospitalization, Other)
  Sender: FDA-Public Use
  Company Number: KR-009507513-1903KOR004494

PATIENT
  Sex: Female

DRUGS (28)
  1. LEGALON [Concomitant]
     Active Substance: DIETARY SUPPLEMENT\HERBALS\MILK THISTLE
     Dosage: LEGALON CAP 140; QUANTITY 2; DAYS1
     Dates: start: 20190304, end: 20190304
  2. URSA TABLETS [Concomitant]
     Dosage: 100 MILLIGRAM, QUANTITY 2, DAYS1
     Dates: start: 20190325, end: 20190325
  3. SODIUM CHLORIDE. [Concomitant]
     Active Substance: SODIUM CHLORIDE
     Dosage: CJ 0.9%; 1000 ML; QUANTITY 1; DAYS 2
  4. GAVISCON (CALCIUM CARBONATE (+) SODIUM ALGINATE (+) SODIUM BICARBONATE [Concomitant]
     Active Substance: CALCIUM CARBONATE\SODIUM ALGINATE\SODIUM BICARBONATE
     Dosage: QUANTITY 40, DAYS 1
     Dates: start: 20190326
  5. SELENASE [Concomitant]
     Dosage: PERORAL, 100 MICROGRAM;QUANTITY 1, DAYS 21
     Route: 048
     Dates: start: 20190327, end: 20190327
  6. URSA TABLETS [Concomitant]
     Dosage: 100 MILLIGRAM; QUANTITY 1; DAYS 4
     Dates: start: 20190303, end: 20190304
  7. URSA TABLETS [Concomitant]
     Dosage: 100 MILLIGRAM; QUANTITY 3, DAYS22
     Dates: start: 20190326, end: 20190327
  8. NICETILE [Concomitant]
     Active Substance: ACETYLCARNITINE HYDROCHLORIDE
     Dosage: QUANTITY 1; DAYS 3
     Dates: start: 20190303, end: 20190304
  9. RESOLOR [Concomitant]
     Active Substance: PRUCALOPRIDE SUCCINATE
     Dosage: QUANTITY 1; DAYS 2
     Dates: start: 20190304, end: 20190304
  10. SODIUM CHLORIDE. [Concomitant]
     Active Substance: SODIUM CHLORIDE
     Dosage: 50 MILLILITER, QUANTITY 1, DAYS1
     Dates: start: 20190304, end: 20190304
  11. LEGALON [Concomitant]
     Active Substance: DIETARY SUPPLEMENT\HERBALS\MILK THISTLE
     Dosage: 140 (UNIT NOT PROVIDED),  QUANTITY 2; DAYS 23
     Dates: start: 20190325, end: 20190327
  12. FAMOTIDINE. [Concomitant]
     Active Substance: FAMOTIDINE
     Dosage: REPORED AS DONGA GASTER TAB 20MG; QUANTITY 2; DAYS 29
     Dates: start: 20190304, end: 20190305
  13. NICETILE [Concomitant]
     Active Substance: ACETYLCARNITINE HYDROCHLORIDE
     Dosage: QUANTITY 2; DAYS 2
     Dates: start: 20190325, end: 20190326
  14. LACIDOFIL [Concomitant]
     Active Substance: LACTOBACILLUS ACIDOPHILUS\LACTOBACILLUS RHAMNOSUS
     Dosage: QUANTITY 2; DAYS 1
     Dates: start: 20190304, end: 20190304
  15. GASTER (CROMOLYN SODIUM) [Concomitant]
     Active Substance: CROMOLYN SODIUM
     Dosage: ING, 20 MG; QUANTITY 2, DAYS1
     Dates: start: 20190326, end: 20190326
  16. KEYTRUDA [Suspect]
     Active Substance: PEMBROLIZUMAB
     Indication: OVARIAN CANCER
     Dosage: QUANTITY 2, DAYS1
     Dates: start: 20190304, end: 20190326
  17. LACIDOFIL [Concomitant]
     Active Substance: LACTOBACILLUS ACIDOPHILUS\LACTOBACILLUS RHAMNOSUS
     Dosage: QUANTITY 2; DAYS 2
     Dates: start: 20190325, end: 20190326
  18. SODIUM CHLORIDE. [Concomitant]
     Active Substance: SODIUM CHLORIDE
     Dosage: CJ 0.9%; 1000 ML;  QUANTITY 1; DAYS 2
     Dates: start: 19910304, end: 20190304
  19. KEYTRUDA [Suspect]
     Active Substance: PEMBROLIZUMAB
     Dosage: QUANTITY 2, DAYS1
     Dates: start: 20190422, end: 20190422
  20. SODIUM CHLORIDE. [Concomitant]
     Active Substance: SODIUM CHLORIDE
     Dosage: 50 MILLILITER, QUANTITY 1, DAYS 2
     Dates: start: 20190326, end: 20190326
  21. GASTER (CROMOLYN SODIUM) [Concomitant]
     Active Substance: CROMOLYN SODIUM
     Dosage: 20 MILLIGRAM, QUANTITY 2, DAYS 8
     Dates: start: 20190325, end: 20190327
  22. TANTUM [Concomitant]
     Active Substance: BENZYDAMINE HYDROCHLORIDE
     Dosage: SOLUTION, QUANTITY 1, DAYS 1
  23. HEPA-MERZ [Concomitant]
     Dosage: QUANTITY 2, DAYS1
     Dates: start: 20190325, end: 20190325
  24. SIMVAST [Concomitant]
     Dosage: QUANTITY 1; DAYS 17
     Dates: start: 20190304, end: 20190304
  25. SIMVAST [Concomitant]
     Dosage: QUANTITY 1; DAYS 9
     Dates: start: 20190325, end: 20190327
  26. MAGO [Concomitant]
     Dosage: QUANTITY 3; DAYS 1
     Dates: start: 20190304, end: 20190304
  27. BEECOM [Concomitant]
     Dosage: QUANTITY 1; DAYS 21
     Dates: start: 20190327, end: 20190327
  28. MACPERAN [Concomitant]
     Active Substance: METOCLOPRAMIDE HYDROCHLORIDE
     Dosage: QUANTITY 3, DAYS 5
     Dates: start: 20190327, end: 20190327

REACTIONS (4)
  - Adverse event [Unknown]
  - Product use in unapproved indication [Unknown]
  - Ascites [Unknown]
  - Adverse event [Unknown]

NARRATIVE: CASE EVENT DATE: 2019
